FAERS Safety Report 9614749 (Version 1)
Quarter: 2013Q4

REPORT INFORMATION
  Report Type: Spontaneous
  Country: US (occurrence: None)
  Receive Date: 20131009
  Receipt Date: 20131009
  Transmission Date: 20140711
  Serious: Yes (Disabling)
  Sender: FDA-Public Use
  Company Number: None

PATIENT
  Age: 20 Year
  Sex: Female
  Weight: 55.79 kg

DRUGS (1)
  1. MONISTAT 3 [Suspect]
     Indication: VULVOVAGINAL MYCOTIC INFECTION
     Dosage: 3 APPLICATORS AT BEDTIME VAGINAL
     Route: 067
     Dates: start: 20131007, end: 20131007

REACTIONS (7)
  - Vulvovaginal burning sensation [None]
  - Vulvovaginal pruritus [None]
  - Vulvovaginal pain [None]
  - Middle insomnia [None]
  - Drug hypersensitivity [None]
  - Vulvovaginal swelling [None]
  - Application site reaction [None]
